FAERS Safety Report 22084081 (Version 1)
Quarter: 2023Q1

REPORT INFORMATION
  Report Type: Other
  Country: GB (occurrence: None)
  Receive Date: 20230310
  Receipt Date: 20230310
  Transmission Date: 20230417
  Serious: Yes (Other)
  Sender: FDA-Public Use
  Company Number: GB-ROCHE-3233472

PATIENT
  Sex: Female

DRUGS (1)
  1. ESBRIET [Suspect]
     Active Substance: PIRFENIDONE
     Indication: Product used for unknown indication
     Dosage: 3 TDS
     Route: 048
     Dates: start: 20220928

REACTIONS (6)
  - Cardiac failure [Unknown]
  - Fatigue [Unknown]
  - Bladder disorder [Unknown]
  - Blood sodium decreased [Unknown]
  - Lower respiratory tract infection [Unknown]
  - Pulmonary fibrosis [Unknown]
